FAERS Safety Report 17971264 (Version 1)
Quarter: 2020Q3

REPORT INFORMATION
  Report Type: Report from Study
  Country: US (occurrence: US)
  Receive Date: 20200701
  Receipt Date: 20200701
  Transmission Date: 20201103
  Serious: Yes (Hospitalization, Other)
  Sender: FDA-Public Use
  Company Number: US-JNJFOC-20191247685

PATIENT
  Age: 89 Year
  Sex: Female

DRUGS (5)
  1. IMBRUVICA [Suspect]
     Active Substance: IBRUTINIB
     Route: 048
     Dates: start: 20191213
  2. IMBRUVICA [Suspect]
     Active Substance: IBRUTINIB
     Route: 048
     Dates: start: 20191219
  3. IMBRUVICA [Suspect]
     Active Substance: IBRUTINIB
     Indication: MANTLE CELL LYMPHOMA
     Route: 048
     Dates: start: 20191219
  4. DURAGESIC [Suspect]
     Active Substance: FENTANYL
     Indication: PAIN IN EXTREMITY
     Route: 023
  5. IMBRUVICA [Suspect]
     Active Substance: IBRUTINIB
     Route: 048
     Dates: start: 20200421

REACTIONS (14)
  - Blood urine present [Unknown]
  - Anal incontinence [Unknown]
  - Blood iron decreased [Unknown]
  - Pain in extremity [Unknown]
  - Herpes zoster [Unknown]
  - Cystitis [Unknown]
  - Asthenia [Unknown]
  - Anal incontinence [Unknown]
  - Hallucination [Unknown]
  - Diarrhoea [Unknown]
  - Emotional disorder [Unknown]
  - Diarrhoea [Recovered/Resolved]
  - Urinary incontinence [Unknown]
  - Depression [Unknown]

NARRATIVE: CASE EVENT DATE: 201912
